FAERS Safety Report 5311719-2 (Version None)
Quarter: 2007Q2

REPORT INFORMATION
  Report Type: 
  Country: None (occurrence: None)
  Receive Date: 20070426
  Receipt Date: 20070426
  Transmission Date: 20071010
  Serious: Yes (Other)
  Sender: FDA-Public Use
  Company Number: None

PATIENT
  Age: 61 Year
  Sex: Female
  Weight: 75.7507 kg

DRUGS (1)
  1. CHANTIX [Suspect]
     Indication: NICOTINE DEPENDENCE
     Dosage: 0.5 MG   QDX3D, BID X 4D   PO
     Route: 048
     Dates: start: 20070310, end: 20070318

REACTIONS (3)
  - AFFECT LABILITY [None]
  - SUICIDAL BEHAVIOUR [None]
  - TEARFULNESS [None]
